FAERS Safety Report 9015224 (Version 1)
Quarter: 2013Q1

REPORT INFORMATION
  Report Type: Spontaneous
  Country: US (occurrence: None)
  Receive Date: 20130103
  Receipt Date: 20130103
  Transmission Date: 20140127
  Serious: Yes (Other)
  Sender: FDA-Public Use
  Company Number: 001444580A

PATIENT
  Age: 63 Year
  Sex: Female

DRUGS (6)
  1. PROACTIV REFINING MASK [Suspect]
     Indication: ACNE
     Dosage: ONCE DAILY DERMAL USE
     Dates: start: 20121207, end: 20121210
  2. PROACTIV RENEWING CLEANSER [Suspect]
     Indication: ACNE
     Dosage: ONCE DAILY DERMAL USE
     Dates: start: 20121207, end: 20121210
  3. PROACTIV OIL FREE MOISTURIZER SPF 15 [Suspect]
     Indication: ACNE
     Dosage: ONCE DAILY DERMAL USE
     Dates: start: 20121207, end: 20121210
  4. BENZOYL PEROXIDE [Suspect]
     Indication: ACNE
     Dosage: ONCE DAILY DERMAL USE
     Dates: start: 20121207, end: 20121210
  5. LOVASTATIN 20 MG DAILY [Concomitant]
  6. MOTRIN PRN. [Concomitant]

REACTIONS (5)
  - Erythema [None]
  - Dry skin [None]
  - Urticaria [None]
  - Skin burning sensation [None]
  - Presyncope [None]
